FAERS Safety Report 6003106-9 (Version None)
Quarter: 2008Q4

REPORT INFORMATION
  Report Type: 
  Country: None (occurrence: None)
  Receive Date: 20081215
  Receipt Date: 20081215
  Transmission Date: 20090506
  Serious: Yes (Other)
  Sender: FDA-Public Use
  Company Number: None

PATIENT
  Sex: Female
  Weight: 77 kg

DRUGS (1)
  1. 25%  HUMAN ALBUMIN (GRIFOLS) [Suspect]
     Indication: SUBARACHNOID HAEMORRHAGE
     Dosage: 1.25G/KG ONCE DAILY X7DAY IV
     Route: 042
     Dates: start: 20081025, end: 20081027

REACTIONS (7)
  - CEREBRAL INFARCTION [None]
  - FLUID OVERLOAD [None]
  - HEMIPARESIS [None]
  - OXYGEN SATURATION DECREASED [None]
  - POST PROCEDURAL COMPLICATION [None]
  - VASOSPASM [None]
  - WHEEZING [None]
